FAERS Safety Report 5052983-7 (Version None)
Quarter: 2006Q3

REPORT INFORMATION
  Report Type: 
  Country: None (occurrence: None)
  Receive Date: 20060712
  Receipt Date: 20060628
  Transmission Date: 20061208
  Serious: Yes (Other)
  Sender: FDA-Public Use
  Company Number: 2006082831

PATIENT
  Age: 78 Year
  Sex: Female

DRUGS (7)
  1. XALATAN [Suspect]
     Indication: GLAUCOMA
     Dosage: 2 DROP (EVERY DAY)
     Dates: start: 20060105
  2. AVAPRO [Concomitant]
  3. ZANTAC [Concomitant]
  4. CENTRUM (MINERALS NOS, VITAMINS NOS) [Concomitant]
  5. CALCIUM GLUCONATE [Concomitant]
  6. MAGNESIUM [Concomitant]
  7. ALBUTEROL [Concomitant]

REACTIONS (4)
  - BRONCHOSPASM [None]
  - DYSPNOEA [None]
  - INCORRECT DOSE ADMINISTERED [None]
  - INCREASED BRONCHIAL SECRETION [None]
